FAERS Safety Report 20326007 (Version 1)
Quarter: 2022Q1

REPORT INFORMATION
  Report Type: Spontaneous
  Country: US (occurrence: US)
  Receive Date: 20220112
  Receipt Date: 20220112
  Transmission Date: 20220424
  Serious: Yes (Other)
  Sender: FDA-Public Use
  Company Number: US-CELLTRION INC.-2021US017521

PATIENT

DRUGS (2)
  1. TRUXIMA [Suspect]
     Active Substance: RITUXIMAB-ABBS
     Indication: End stage renal disease
     Dosage: 670 MG FOR 100 MG (FREQUENCY: 1000 MG PER INFUSION FOR 2 WEEKS)
     Route: 042
     Dates: start: 20210504
  2. TRUXIMA [Suspect]
     Active Substance: RITUXIMAB-ABBS
     Dosage: 670 MG FOR 100 MG (FREQUENCY: 1000 MG PER INFUSION FOR 2 WEEKS)
     Route: 042
     Dates: start: 20210511

REACTIONS (2)
  - End stage renal disease [Unknown]
  - Off label use [Unknown]
